FAERS Safety Report 8267937-7 (Version None)
Quarter: 2012Q2

REPORT INFORMATION
  Report Type: 
  Country: None (occurrence: None)
  Receive Date: 20120409
  Receipt Date: 20120331
  Transmission Date: 20120825
  Serious: Yes (Death, Hospitalization)
  Sender: FDA-Public Use
  Company Number: PHHO2011CN08204

PATIENT
  Sex: Male
  Weight: 86 kg

DRUGS (13)
  1. ENALAPRIL MALEATE [Suspect]
     Dosage: UNK
     Dates: start: 20101231, end: 20110113
  2. ENALAPRIL MALEATE [Suspect]
     Indication: CARDIAC FAILURE
     Dosage: CODE NOT BROKEN
     Route: 048
     Dates: start: 20110118, end: 20110506
  3. ALISKIREN [Suspect]
     Indication: CARDIAC FAILURE
     Dosage: UNK
     Route: 048
     Dates: start: 20101230
  4. METOPROLOL TARTRATE [Concomitant]
     Indication: CARDIAC FAILURE CONGESTIVE
     Dosage: UNK
     Dates: start: 20060701
  5. FOSINOPRIL SODIUM [Concomitant]
     Indication: HYPERTENSION
     Dosage: 10 MG, BID
     Route: 048
     Dates: start: 20110517
  6. WARFARIN SODIUM [Concomitant]
     Indication: ATRIAL FIBRILLATION
     Dosage: UNK
     Dates: start: 20080501
  7. DIGOXIN [Concomitant]
     Indication: CARDIAC FAILURE CONGESTIVE
     Dosage: UNK
     Dates: start: 20060701
  8. ENALAPRIL MALEATE [Suspect]
     Indication: CARDIAC FAILURE
     Dosage: UNK
     Route: 048
     Dates: start: 20101130, end: 20101213
  9. BLINDED ALISKIREN [Suspect]
     Indication: CARDIAC FAILURE
     Dosage: CODE NOT BROKEN
     Route: 048
     Dates: start: 20110118, end: 20110506
  10. AMLODIPINE [Concomitant]
     Indication: HYPERTENSION
     Dosage: UNK
     Dates: start: 20110506
  11. BLINDED NO TREATMENT RECEIVED [Suspect]
     Indication: CARDIAC FAILURE
     Dosage: CODE NOT BROKEN
     Route: 048
     Dates: start: 20110118, end: 20110506
  12. TRIMETAZIDINE [Concomitant]
     Indication: CARDIAC FAILURE CONGESTIVE
     Dosage: UNK
     Dates: start: 20060701
  13. ALDACTONE [Concomitant]
     Indication: CARDIAC FAILURE CONGESTIVE
     Dosage: UNK
     Dates: start: 20101231

REACTIONS (4)
  - DISEASE PROGRESSION [None]
  - RENAL FAILURE [None]
  - SUDDEN DEATH [None]
  - CONCOMITANT DISEASE PROGRESSION [None]
